FAERS Safety Report 8518920-5 (Version None)
Quarter: 2012Q3

REPORT INFORMATION
  Report Type: 
  Country: None (occurrence: None)
  Receive Date: 20120718
  Receipt Date: 20120710
  Transmission Date: 20120928
  Serious: Yes (Hospitalization)
  Sender: FDA-Public Use
  Company Number: US-GLAXOSMITHKLINE-A0984014A

PATIENT
  Age: 63 Year
  Sex: Female
  Weight: 45.5 kg

DRUGS (11)
  1. COREG [Concomitant]
  2. AMBIEN [Concomitant]
  3. CAPECITABINE [Suspect]
     Indication: HEAD AND NECK CANCER
     Dosage: 1250MGM2 PER DAY
     Route: 048
     Dates: start: 20120619
  4. MAGNESIUM OXIDE [Concomitant]
  5. PROCHLORPERAZINE [Concomitant]
  6. AMLODIPINE [Concomitant]
  7. ZOFRAN [Concomitant]
  8. ASPIRIN [Concomitant]
  9. LAPATINIB [Suspect]
     Indication: HEAD AND NECK CANCER
     Dosage: 1250MG PER DAY
     Route: 048
     Dates: start: 20120619
  10. ZOLOFT [Concomitant]
  11. LOSARTAN POTASSIUM [Concomitant]

REACTIONS (1)
  - DIARRHOEA [None]
